FAERS Safety Report 25194965 (Version 1)
Quarter: 2025Q2

REPORT INFORMATION
  Report Type: Spontaneous
  Country: RU (occurrence: RU)
  Receive Date: 20250415
  Receipt Date: 20250415
  Transmission Date: 20250716
  Serious: Yes (Death, Other)
  Sender: ABBVIE
  Company Number: RU-ABBVIE-6228267

PATIENT
  Age: 71 Year
  Sex: Male

DRUGS (1)
  1. VENETOCLAX [Suspect]
     Active Substance: VENETOCLAX
     Indication: Chronic lymphocytic leukaemia
     Route: 048

REACTIONS (1)
  - Prostate cancer [Fatal]
